FAERS Safety Report 8502869-8 (Version None)
Quarter: 2012Q3

REPORT INFORMATION
  Report Type: 
  Country: None (occurrence: None)
  Receive Date: 20120705
  Receipt Date: 20120705
  Transmission Date: 20120928
  Serious: Yes (Other)
  Sender: FDA-Public Use
  Company Number: None

PATIENT
  Age: 56 Year
  Sex: Male
  Weight: 190.5108 kg

DRUGS (2)
  1. WELCHOL [Suspect]
     Indication: DIARRHOEA
     Dosage: 1300 MG BID PO
     Route: 048
     Dates: start: 20120615, end: 20120630
  2. WELCHOL [Suspect]
     Indication: PAIN
     Dosage: 1300 MG BID PO
     Route: 048
     Dates: start: 20120615, end: 20120630

REACTIONS (2)
  - ORAL PAIN [None]
  - TONGUE BLISTERING [None]
